FAERS Safety Report 9843881 (Version 1)
Quarter: 2013Q4

REPORT INFORMATION
  Report Type: Spontaneous
  Country: US (occurrence: None)
  Receive Date: 20131223
  Receipt Date: 20131223
  Transmission Date: 20140711
  Serious: Yes (Other)
  Sender: FDA-Public Use
  Company Number: 1000048484

PATIENT
  Age: 81 Year
  Sex: Female

DRUGS (11)
  1. LINZESS [Suspect]
     Indication: IRRITABLE BOWEL SYNDROME
     Route: 048
     Dates: start: 20130826
  2. LOTREL (COROVAL B) [Concomitant]
  3. LASIX (FUROSEMIDE) [Concomitant]
  4. KCL (POTASSIUM CHLORIDE) [Concomitant]
  5. AMBIEN (ZOLPIDEM TARTRATE) [Concomitant]
  6. VALIUM (DIAZEPAM) [Concomitant]
  7. GLUCOSAMINE [Concomitant]
  8. CHONDROITIN [Concomitant]
  9. CALCIUM CITRATE [Concomitant]
  10. OMEGA-3 [Concomitant]
  11. PRILOSEC (OMEPRAZOLE) [Concomitant]

REACTIONS (1)
  - Diarrhoea [None]
